FAERS Safety Report 23082894 (Version 1)
Quarter: 2023Q4

REPORT INFORMATION
  Report Type: Spontaneous
  Country: US (occurrence: None)
  Receive Date: 20231018
  Receipt Date: 20231018
  Transmission Date: 20240110
  Serious: Yes (Life-Threatening, Other)
  Sender: FDA-Public Use
  Company Number: None

PATIENT
  Age: 56 Year
  Sex: Male
  Weight: 90 kg

DRUGS (5)
  1. OZEMPIC [Suspect]
     Active Substance: SEMAGLUTIDE
     Indication: Diabetes mellitus
  2. OZEMPIC [Suspect]
     Active Substance: SEMAGLUTIDE
     Indication: Weight decreased
  3. Lisiniprol [Concomitant]
  4. restless leg medication [Concomitant]
  5. PRAVASTATIN [Concomitant]
     Active Substance: PRAVASTATIN

REACTIONS (8)
  - Nausea [None]
  - Vomiting [None]
  - Diarrhoea [None]
  - Fatigue [None]
  - Suicidal ideation [None]
  - Depression [None]
  - Depressed mood [None]
  - Product use complaint [None]

NARRATIVE: CASE EVENT DATE: 20231018
